FAERS Safety Report 8258026-6 (Version None)
Quarter: 2012Q2

REPORT INFORMATION
  Report Type: 
  Country: None (occurrence: None)
  Receive Date: 20120404
  Receipt Date: 20120328
  Transmission Date: 20120825
  Serious: No
  Sender: FDA-Public Use
  Company Number: US-PFIZER INC-2012080612

PATIENT

DRUGS (3)
  1. POLYMYXIN [Concomitant]
     Dosage: UNK
  2. GARAMYCIN [Concomitant]
     Dosage: UNK
  3. ZYVOX [Suspect]
     Indication: PNEUMONIA
     Dosage: UNK

REACTIONS (1)
  - PIGMENTATION DISORDER [None]
